FAERS Safety Report 17116372 (Version 1)
Quarter: 2019Q4

REPORT INFORMATION
  Report Type: Spontaneous
  Country: DE (occurrence: DE)
  Receive Date: 20191205
  Receipt Date: 20191205
  Transmission Date: 20200122
  Serious: Yes (Other)
  Sender: FDA-Public Use
  Company Number: DE-US-PROVELL PHARMACEUTICALS LLC-E2B_90072807

PATIENT
  Sex: Female

DRUGS (2)
  1. EUTHYROX NF [Suspect]
     Active Substance: LEVOTHYROXINE SODIUM
     Dosage: TAKES 75MCG AND 88MCG ALTERNATELY IN CONSULTATION WITH THE ATTENDING PHYSICIAN FOR 1.5 MONTHS (OCT 2
     Dates: start: 2019, end: 20191123
  2. EUTHYROX NF [Suspect]
     Active Substance: LEVOTHYROXINE SODIUM
     Indication: GOITRE
     Dosage: TAKES 75MCG AND 88MCG ALTERNATELY (OCT 2019 TO 23 NOV 2019)
     Dates: start: 201910

REACTIONS (19)
  - Dyspnoea [Recovering/Resolving]
  - Feeling cold [Unknown]
  - Eye inflammation [Unknown]
  - Hypothyroidism [Unknown]
  - Dry skin [Unknown]
  - Peripheral coldness [Unknown]
  - Crying [Unknown]
  - Bronchitis [Recovering/Resolving]
  - Dry mouth [Unknown]
  - Pruritus [Unknown]
  - Nasopharyngitis [Unknown]
  - Drug intolerance [Unknown]
  - Allergic reaction to excipient [Unknown]
  - Blood thyroid stimulating hormone abnormal [Recovering/Resolving]
  - Lip dry [Unknown]
  - Apathy [Unknown]
  - Discomfort [Unknown]
  - Hair texture abnormal [Unknown]
  - Hypersomnia [Unknown]

NARRATIVE: CASE EVENT DATE: 2019
